FAERS Safety Report 9419031 (Version 1)
Quarter: 2013Q3

REPORT INFORMATION
  Report Type: Report from Study
  Country: AR (occurrence: AR)
  Receive Date: 20130725
  Receipt Date: 20130725
  Transmission Date: 20140515
  Serious: Yes (Hospitalization, Other)
  Sender: FDA-Public Use
  Company Number: PHHY2013AR041040

PATIENT
  Sex: Female

DRUGS (4)
  1. GLIVEC [Suspect]
     Indication: CHRONIC MYELOID LEUKAEMIA
     Dosage: 400 MG, DAILY
     Route: 048
     Dates: start: 2008
  2. GLIVEC [Suspect]
     Dosage: 600 MG, DAILY
     Route: 048
  3. GLIVEC [Suspect]
     Dosage: 400 MG, DAILY
     Route: 048
  4. HIDROXIUREA [Suspect]
     Dosage: UNK

REACTIONS (8)
  - Platelet count increased [Not Recovered/Not Resolved]
  - Fungal infection [Not Recovered/Not Resolved]
  - Localised infection [Not Recovered/Not Resolved]
  - Fall [Unknown]
  - Hand fracture [Not Recovered/Not Resolved]
  - Wound [Unknown]
  - Skin infection [Unknown]
  - Fatigue [Recovering/Resolving]
